FAERS Safety Report 7048447-1 (Version None)
Quarter: 2010Q4

REPORT INFORMATION
  Report Type: 
  Country: None (occurrence: None)
  Receive Date: 20101015
  Receipt Date: 20101015
  Transmission Date: 20110411
  Serious: Yes (Hospitalization, Other)
  Sender: FDA-Public Use
  Company Number: None

PATIENT
  Age: 80 Year
  Sex: Male
  Weight: 71.4 kg

DRUGS (23)
  1. LEVETIRACETAM [Suspect]
     Indication: CONVULSION PROPHYLAXIS
     Dosage: 500 MG BID ORAL 500 MG Q12H IV
     Route: 048
     Dates: start: 20100922, end: 20100928
  2. APAP TAB [Concomitant]
  3. VENTOLIN HFA [Concomitant]
  4. AMIODARONE HCL [Concomitant]
  5. ASPIRIN [Concomitant]
  6. BUPIVACAINE HCL [Concomitant]
  7. LOVENOX [Concomitant]
  8. PEPCID [Concomitant]
  9. ADVAIR DISKUS 100/50 [Concomitant]
  10. MONOPRIL [Concomitant]
  11. RESTORIL [Concomitant]
  12. WARFARIN [Concomitant]
  13. AMBIEN [Concomitant]
  14. HYDROCODONE [Concomitant]
  15. LISPRO [Concomitant]
  16. ATIVAN [Concomitant]
  17. MEDROL [Concomitant]
  18. LOPRESSOR [Concomitant]
  19. MORPHINE [Concomitant]
  20. PROCARDIA XL [Concomitant]
  21. PHENYTOIN [Concomitant]
  22. TIMOPTIC [Concomitant]
  23. SPIRIVA [Concomitant]

REACTIONS (1)
  - INAPPROPRIATE ANTIDIURETIC HORMONE SECRETION [None]
